FAERS Safety Report 7473257-0 (Version None)
Quarter: 2011Q2

REPORT INFORMATION
  Report Type: 
  Country: None (occurrence: None)
  Receive Date: 20110511
  Receipt Date: 20110505
  Transmission Date: 20111010
  Serious: Yes (Other)
  Sender: FDA-Public Use
  Company Number: B0718415A

PATIENT
  Age: 27 Year
  Sex: Female

DRUGS (1)
  1. MALARONE [Suspect]
     Indication: MALARIA PROPHYLAXIS
     Route: 048
     Dates: start: 20100915, end: 20100930

REACTIONS (3)
  - BLOOD AMYLASE INCREASED [None]
  - HYPERTRANSAMINASAEMIA [None]
  - ABDOMINAL PAIN UPPER [None]
